FAERS Safety Report 6530665-X (Version None)
Quarter: 2010Q1

REPORT INFORMATION
  Report Type: 
  Country: None (occurrence: None)
  Receive Date: 20100108
  Receipt Date: 20090526
  Transmission Date: 20100710
  Serious: No
  Sender: FDA-Public Use
  Company Number: A0744690A

PATIENT
  Age: 27 Year
  Sex: Female

DRUGS (2)
  1. LOVAZA [Suspect]
     Indication: DEPRESSION
     Dosage: 2CAP PER DAY
     Route: 048
     Dates: start: 20080801, end: 20080801
  2. VITAMIN TAB [Concomitant]

REACTIONS (1)
  - DRUG EXPOSURE DURING PREGNANCY [None]
